FAERS Safety Report 20587725 (Version 1)
Quarter: 2022Q1

REPORT INFORMATION
  Report Type: Report from Study
  Country: BR (occurrence: BR)
  Receive Date: 20220314
  Receipt Date: 20220314
  Transmission Date: 20220424
  Serious: Yes (Other)
  Sender: FDA-Public Use
  Company Number: BR-ABBVIE-22K-020-4312671-00

PATIENT
  Sex: Female
  Weight: 45 kg

DRUGS (1)
  1. RINVOQ [Suspect]
     Active Substance: UPADACITINIB
     Indication: Rheumatoid arthritis
     Route: 048
     Dates: start: 20210713

REACTIONS (13)
  - Asphyxia [Not Recovered/Not Resolved]
  - Aphonia [Not Recovered/Not Resolved]
  - Hypersensitivity [Unknown]
  - Dermatitis [Recovered/Resolved]
  - Wound [Recovered/Resolved]
  - Skin disorder [Not Recovered/Not Resolved]
  - Blood cholesterol abnormal [Recovering/Resolving]
  - Swelling [Unknown]
  - Pruritus [Unknown]
  - Pharyngeal inflammation [Unknown]
  - Oropharyngeal pain [Not Recovered/Not Resolved]
  - Acne [Recovered/Resolved]
  - Cough [Not Recovered/Not Resolved]

NARRATIVE: CASE EVENT DATE: 20210101
